FAERS Safety Report 6345099-0 (Version None)
Quarter: 2009Q3

REPORT INFORMATION
  Report Type: 
  Country: None (occurrence: None)
  Receive Date: 20090909
  Receipt Date: 20090831
  Transmission Date: 20100115
  Serious: Yes (Hospitalization)
  Sender: FDA-Public Use
  Company Number: US-ELI_LILLY_AND_COMPANY-US200907001272

PATIENT
  Sex: Female
  Weight: 115.19 kg

DRUGS (13)
  1. BYETTA [Suspect]
     Dosage: 5 UG, 2/D
     Route: 058
     Dates: start: 20080305, end: 20080416
  2. BYETTA [Suspect]
     Dosage: 10 UG, 2/D
     Route: 058
     Dates: start: 20080416, end: 20081002
  3. BYETTA [Suspect]
     Dosage: 5 UG, 2/D
     Route: 058
     Dates: start: 20081002, end: 20090422
  4. BYETTA [Suspect]
     Dosage: 10 UG, 2/D
     Route: 058
     Dates: start: 20090422
  5. METFORMIN HCL [Concomitant]
     Indication: TYPE 2 DIABETES MELLITUS
     Dosage: 500 MG, 3/D
     Dates: start: 20070207, end: 20080226
  6. METFORMIN HCL [Concomitant]
     Dosage: 500 MG, 3/D
     Dates: start: 20080226
  7. SYNTHROID [Concomitant]
     Indication: HYPOTHYROIDISM
     Dosage: 100 UG, DAILY (1/D)
     Route: 048
     Dates: start: 20060125
  8. INDERAL [Concomitant]
     Indication: HYPERTENSION
     Dosage: 20 MG, 2/D
     Route: 048
  9. CATAPRES /00171102/ [Concomitant]
     Indication: HYPERTENSION
     Dosage: 0.2 MG, 2/D
     Route: 048
     Dates: start: 20040517
  10. LOTENSIN [Concomitant]
     Indication: HYPERTENSION
     Dosage: 10 MG, DAILY (1/D)
     Route: 048
     Dates: start: 19971111
  11. AMBIEN [Concomitant]
     Indication: INSOMNIA
     Dosage: 10 MG, AS NEEDED
     Dates: start: 19980427, end: 20010401
  12. AMBIEN [Concomitant]
     Dosage: 10 MG, AS NEEDED
     Dates: start: 20010421
  13. IBUPROFEN [Concomitant]
     Dosage: 600 MG, 2/D
     Route: 048

REACTIONS (12)
  - ABNORMAL BEHAVIOUR [None]
  - BENIGN OVARIAN TUMOUR [None]
  - BLOOD GLUCOSE INCREASED [None]
  - DECREASED APPETITE [None]
  - DRUG DOSE OMISSION [None]
  - GASTROENTERITIS [None]
  - GLAUCOMA [None]
  - INFECTION [None]
  - NAUSEA [None]
  - POSTOPERATIVE WOUND COMPLICATION [None]
  - VOMITING [None]
  - WEIGHT DECREASED [None]
